FAERS Safety Report 9335495 (Version 1)
Quarter: 2013Q2

REPORT INFORMATION
  Report Type: Spontaneous
  Country: JP (occurrence: JP)
  Receive Date: 20130607
  Receipt Date: 20130607
  Transmission Date: 20140414
  Serious: Yes (Hospitalization)
  Sender: FDA-Public Use
  Company Number: JP-009507513-1305JPN018030

PATIENT
  Age: 52 Year
  Sex: Male

DRUGS (4)
  1. PEGINTRON [Suspect]
     Dosage: 100 MICROGRAM, QW
     Route: 058
  2. REBETOL [Suspect]
     Dosage: DAILY DOSAGE UNKNOWN
     Route: 048
  3. PARIET [Concomitant]
     Dosage: DAILY DOSAGE UNKNOWN
     Route: 048
  4. GASTER [Concomitant]
     Dosage: DAILY DOSAGE UNKNOWN
     Route: 048

REACTIONS (2)
  - Blood creatine phosphokinase increased [Unknown]
  - Injection site swelling [Unknown]
